FAERS Safety Report 24193126 (Version 2)
Quarter: 2024Q3

REPORT INFORMATION
  Report Type: Spontaneous
  Country: JP (occurrence: JP)
  Receive Date: 20240809
  Receipt Date: 20240902
  Transmission Date: 20241017
  Serious: Yes (Other)
  Sender: GLAXOSMITHKLINE
  Company Number: JP-GSKNCCC-Case-02040200_AE-86348

PATIENT

DRUGS (9)
  1. ALBUTEROL [Suspect]
     Active Substance: ALBUTEROL
     Indication: Asthma
     Dosage: 0.4 ML
     Route: 055
     Dates: start: 20240803
  2. FLUTICASONE FUROATE\VILANTEROL TRIFENATATE [Suspect]
     Active Substance: FLUTICASONE FUROATE\VILANTEROL TRIFENATATE
     Dosage: UNK
  3. PULMICORT TURBUHALER [Suspect]
     Active Substance: BUDESONIDE
     Indication: Asthma
     Dosage: 2 ML,0.5MG
     Route: 055
     Dates: start: 20240803
  4. PROCATEROL HYDROCHLORIDE [Concomitant]
     Active Substance: PROCATEROL HYDROCHLORIDE
     Dosage: UNK
  5. PREDONINE [Concomitant]
     Active Substance: PREDNISOLONE
     Dosage: 1 MG
  6. HERBALS [Concomitant]
     Active Substance: HERBALS
     Dosage: 2.5 G
  7. Mucosal [Concomitant]
     Dosage: 15 MG
  8. CLARITHROMYCIN [Concomitant]
     Active Substance: CLARITHROMYCIN
     Dosage: UNK
  9. GASTER [Concomitant]
     Active Substance: FAMOTIDINE
     Dosage: 10 MG

REACTIONS (10)
  - Angioedema [Recovered/Resolved]
  - Lip erythema [Unknown]
  - Erythema [Unknown]
  - Swelling face [Unknown]
  - Oropharyngeal pain [Unknown]
  - Mouth swelling [Unknown]
  - Cough [Unknown]
  - Paraesthesia oral [Unknown]
  - Lip oedema [Unknown]
  - Lip swelling [Unknown]

NARRATIVE: CASE EVENT DATE: 20240803
